FAERS Safety Report 7916549-0 (Version None)
Quarter: 2011Q4

REPORT INFORMATION
  Report Type: 
  Country: None (occurrence: None)
  Receive Date: 20111116
  Receipt Date: 20111108
  Transmission Date: 20120403
  Serious: Yes (Other)
  Sender: FDA-Public Use
  Company Number: FR-JNJFOC-20110900616

PATIENT
  Sex: Female

DRUGS (2)
  1. RISPERDAL [Suspect]
     Indication: PSYCHOMOTOR HYPERACTIVITY
     Route: 065
     Dates: start: 20110713
  2. VALDOXAN (AGOMELATINE) [Concomitant]
     Indication: PSYCHOMOTOR HYPERACTIVITY
     Route: 065
     Dates: start: 20110713

REACTIONS (1)
  - BIPOLAR I DISORDER [None]
